FAERS Safety Report 4393943-9 (Version None)
Quarter: 2004Q3

REPORT INFORMATION
  Report Type: 
  Country: None (occurrence: None)
  Receive Date: 20040702
  Receipt Date: 20040623
  Transmission Date: 20050211
  Serious: Yes (Other)
  Sender: FDA-Public Use
  Company Number: 2004209237GB

PATIENT
  Age: 32 Year
  Sex: Female

DRUGS (2)
  1. DOSTINEX [Suspect]
     Indication: ACROMEGALY
     Dosage: SEE IMAGE
     Route: 048
     Dates: start: 20020101, end: 20020701
  2. DOSTINEX [Suspect]
     Indication: ACROMEGALY
     Dosage: SEE IMAGE
     Route: 048
     Dates: start: 20020701

REACTIONS (2)
  - DRUG EXPOSURE DURING PREGNANCY [None]
  - ECTOPIC PREGNANCY [None]
